FAERS Safety Report 8138670-7 (Version None)
Quarter: 2012Q1

REPORT INFORMATION
  Report Type: 
  Country: None (occurrence: None)
  Receive Date: 20120215
  Receipt Date: 20120131
  Transmission Date: 20120608
  Serious: Yes (Hospitalization)
  Sender: FDA-Public Use
  Company Number: JP-ROCHE-1036470

PATIENT
  Sex: Female

DRUGS (8)
  1. MABTHERA [Suspect]
     Dates: start: 20091220, end: 20110811
  2. MABTHERA [Suspect]
     Indication: NON-HODGKIN'S LYMPHOMA
     Route: 042
     Dates: start: 20090521, end: 20091015
  3. VINCRISTINE SULFATE [Suspect]
     Indication: NON-HODGKIN'S LYMPHOMA
     Route: 042
     Dates: start: 20090521, end: 20090903
  4. PREDNISOLONE [Suspect]
     Indication: NON-HODGKIN'S LYMPHOMA
     Route: 048
     Dates: start: 20090416, end: 20090907
  5. ACETAMINOPHEN [Concomitant]
     Route: 048
     Dates: start: 20090521, end: 20110811
  6. POLARAMINE [Concomitant]
     Route: 048
     Dates: start: 20090521, end: 20110811
  7. CYCLOPHOSPHAMIDE [Suspect]
     Indication: NON-HODGKIN'S LYMPHOMA
     Route: 042
     Dates: start: 20090521, end: 20090903
  8. DOXORUBICIN HCL [Suspect]
     Indication: NON-HODGKIN'S LYMPHOMA
     Route: 042
     Dates: start: 20090521, end: 20090903

REACTIONS (1)
  - INFLAMMATORY BOWEL DISEASE [None]
